FAERS Safety Report 9416461 (Version 2)
Quarter: 2013Q3

REPORT INFORMATION
  Report Type: Spontaneous
  Country: JP (occurrence: None)
  Receive Date: 20130718
  Receipt Date: 20130821
  Transmission Date: 20140515
  Serious: Yes (Other)
  Sender: FDA-Public Use
  Company Number: TCI2013A04055

PATIENT
  Age: 9 Decade
  Sex: Female

DRUGS (1)
  1. NESINA [Suspect]
     Indication: DIABETES MELLITUS
     Route: 048
     Dates: start: 201306, end: 201307

REACTIONS (2)
  - Impaired gastric emptying [None]
  - Ileus [None]
